FAERS Safety Report 10008905 (Version 1)
Quarter: 2014Q1

REPORT INFORMATION
  Report Type: Spontaneous
  Country: US (occurrence: US)
  Receive Date: 20140313
  Receipt Date: 20140313
  Transmission Date: 20141002
  Serious: Yes (Death, Hospitalization)
  Sender: FDA-Public Use
  Company Number: PHHY2014US027456

PATIENT
  Age: 91 Year
  Sex: Female

DRUGS (5)
  1. VANCOMYCIN [Suspect]
  2. CEFTAZIDIME [Suspect]
  3. PIPERACILLIN+TAZOBACTAM [Suspect]
  4. AMPICILLIN+SULBACTAM [Suspect]
  5. AUGMENTIN [Suspect]

REACTIONS (6)
  - Death [Fatal]
  - Linear IgA disease [Unknown]
  - Nikolsky^s sign [Unknown]
  - Skin exfoliation [Unknown]
  - Blister [Unknown]
  - Skin lesion [Unknown]
